FAERS Safety Report 5168873-5 (Version None)
Quarter: 2006Q4

REPORT INFORMATION
  Report Type: 
  Country: None (occurrence: None)
  Receive Date: 20061206
  Receipt Date: 20061206
  Transmission Date: 20070319
  Serious: Yes (Life-Threatening)
  Sender: FDA-Public Use
  Company Number: None

PATIENT
  Age: 54 Year
  Sex: Female
  Weight: 61.2356 kg

DRUGS (1)
  1. ADVAIR DISKUS 250/50 [Suspect]
     Indication: ASTHMA EXERCISE INDUCED
     Dosage: 1 PUFF   2 X DAILY   INHAL
     Route: 055
     Dates: start: 20030501, end: 20061113

REACTIONS (7)
  - ASTHMA [None]
  - CONDITION AGGRAVATED [None]
  - DIZZINESS [None]
  - DRUG INEFFECTIVE [None]
  - DYSPHONIA [None]
  - FATIGUE [None]
  - HYPOVENTILATION [None]
